FAERS Safety Report 17390478 (Version 1)
Quarter: 2020Q1

REPORT INFORMATION
  Report Type: Spontaneous
  Country: NL (occurrence: NL)
  Receive Date: 20200207
  Receipt Date: 20200207
  Transmission Date: 20200409
  Serious: Yes (Other)
  Sender: FDA-Public Use
  Company Number: NL-BAUSCH-BL-2020-003429

PATIENT
  Sex: Male
  Weight: 75 kg

DRUGS (3)
  1. DEXAMETHASON [Suspect]
     Active Substance: DEXAMETHASONE
     Indication: INTRACRANIAL PRESSURE INCREASED
     Dosage: INJECTION FLUID
     Route: 065
     Dates: start: 201910
  2. DEXAMETHASON [Suspect]
     Active Substance: DEXAMETHASONE
     Indication: BRAIN NEOPLASM
  3. OXYCODON [Concomitant]
     Active Substance: OXYCODONE
     Indication: PRODUCT USED FOR UNKNOWN INDICATION

REACTIONS (1)
  - Urinary retention [Not Recovered/Not Resolved]
